FAERS Safety Report 22602548 (Version 2)
Quarter: 2024Q1

REPORT INFORMATION
  Report Type: Report from Study
  Country: CA (occurrence: CA)
  Receive Date: 20230614
  Receipt Date: 20240327
  Transmission Date: 20240410
  Serious: Yes (Other)
  Sender: FDA-Public Use
  Company Number: CA-CELLTRION INC.-2023CA011955

PATIENT

DRUGS (2)
  1. RITUXIMAB [Suspect]
     Active Substance: RITUXIMAB
     Indication: Immune thrombocytopenia
     Dosage: 1000 MG
     Route: 042
  2. RITUXIMAB [Suspect]
     Active Substance: RITUXIMAB
     Dosage: 780 MILLIGRAM
     Route: 042

REACTIONS (5)
  - Feeling abnormal [Unknown]
  - Peripheral coldness [Unknown]
  - Platelet count decreased [Unknown]
  - Off label use [Unknown]
  - Intentional product use issue [Unknown]
